FAERS Safety Report 17755009 (Version 1)
Quarter: 2020Q2

REPORT INFORMATION
  Report Type: Spontaneous
  Country: US (occurrence: US)
  Receive Date: 20200506
  Receipt Date: 20200506
  Transmission Date: 20200714
  Serious: No
  Sender: FDA-Public Use
  Company Number: None

PATIENT
  Age: 73 Year
  Sex: Female

DRUGS (1)
  1. AMBRISENTAN 10MG TABLETS 30/BO: 10MG [Suspect]
     Active Substance: AMBRISENTAN
     Indication: PULMONARY ARTERIAL HYPERTENSION
     Route: 048
     Dates: start: 20200221, end: 20200501

REACTIONS (8)
  - Hypoxia [None]
  - Dyspnoea exertional [None]
  - Pulmonary hypertension [None]
  - Condition aggravated [None]
  - Oedema peripheral [None]
  - Dizziness [None]
  - Interstitial lung disease [None]
  - Oxygen saturation decreased [None]

NARRATIVE: CASE EVENT DATE: 20200506
